FAERS Safety Report 17571205 (Version 1)
Quarter: 2020Q1

REPORT INFORMATION
  Report Type: Spontaneous
  Country: US (occurrence: US)
  Receive Date: 20200323
  Receipt Date: 20200323
  Transmission Date: 20200409
  Serious: No
  Sender: FDA-Public Use
  Company Number: US-009507513-2003USA002903

PATIENT
  Sex: Female

DRUGS (3)
  1. REMERON [Suspect]
     Active Substance: MIRTAZAPINE
     Indication: DEPRESSION
     Dosage: 1 EVERY DAY
     Route: 048
     Dates: start: 2018
  2. REMERON [Suspect]
     Active Substance: MIRTAZAPINE
     Dosage: 1 EVERY DAY, 7.5 MG
     Route: 048
     Dates: end: 202002
  3. REMERON [Suspect]
     Active Substance: MIRTAZAPINE
     Dosage: 1 EVERY DAY
     Route: 048
     Dates: start: 20200226

REACTIONS (3)
  - Depression [Not Recovered/Not Resolved]
  - Fatigue [Not Recovered/Not Resolved]
  - Fatigue [Not Recovered/Not Resolved]

NARRATIVE: CASE EVENT DATE: 2018
